FAERS Safety Report 20050261 (Version 1)
Quarter: 2021Q4

REPORT INFORMATION
  Report Type: Other
  Country: US (occurrence: US)
  Receive Date: 20211109
  Receipt Date: 20211109
  Transmission Date: 20220304
  Serious: Yes (Other)
  Sender: FDA-Public Use
  Company Number: US-INTERCEPT-PM2021002961

PATIENT
  Sex: Female
  Weight: 73.469 kg

DRUGS (1)
  1. OCALIVA [Suspect]
     Active Substance: OBETICHOLIC ACID
     Indication: Primary biliary cholangitis
     Dosage: 5 MILLIGRAM, QD
     Route: 048
     Dates: start: 20210326, end: 20210620

REACTIONS (8)
  - Systemic lupus erythematosus [Unknown]
  - Iron deficiency anaemia [Unknown]
  - Blood potassium increased [Unknown]
  - Glomerular filtration rate decreased [Recovered/Resolved]
  - Carbon dioxide increased [Recovered/Resolved]
  - Gamma-glutamyltransferase increased [Unknown]
  - Alanine aminotransferase increased [Unknown]
  - Abdominal pain [Unknown]

NARRATIVE: CASE EVENT DATE: 20210101
